FAERS Safety Report 23522371 (Version 2)
Quarter: 2024Q1

REPORT INFORMATION
  Report Type: Report from Study
  Country: US (occurrence: None)
  Receive Date: 20240214
  Receipt Date: 20240326
  Transmission Date: 20240409
  Serious: Yes (Other)
  Sender: FDA-Public Use
  Company Number: 2024A035691

PATIENT
  Age: 28930 Day
  Sex: Male

DRUGS (2)
  1. BRILINTA [Suspect]
     Active Substance: TICAGRELOR
     Indication: Cardiac disorder
     Dosage: 90.0MG UNKNOWN
     Route: 048
     Dates: start: 202112, end: 20230803
  2. BRILINTA [Suspect]
     Active Substance: TICAGRELOR
     Indication: Cardiac disorder
     Dosage: 90.0MG UNKNOWN
     Route: 048
     Dates: start: 20240120

REACTIONS (1)
  - Myocardial infarction [Unknown]

NARRATIVE: CASE EVENT DATE: 20240119
